FAERS Safety Report 7923736-4 (Version None)
Quarter: 2011Q4

REPORT INFORMATION
  Report Type: 
  Country: None (occurrence: None)
  Receive Date: 20111117
  Receipt Date: 20110208
  Transmission Date: 20120403
  Serious: No
  Sender: FDA-Public Use
  Company Number: US-AMGEN-USASP2011007459

PATIENT
  Age: 71 Year
  Sex: Female

DRUGS (2)
  1. ARAVA [Concomitant]
     Dosage: UNK
     Dates: end: 20100401
  2. ENBREL [Suspect]
     Indication: RHEUMATOID ARTHRITIS
     Dosage: 50 MG, QWK
     Dates: start: 20050801

REACTIONS (6)
  - DRY EYE [None]
  - WEIGHT DECREASED [None]
  - THERAPEUTIC RESPONSE DECREASED [None]
  - DIARRHOEA [None]
  - DEHYDRATION [None]
  - DRY MOUTH [None]
